FAERS Safety Report 9919635 (Version 3)
Quarter: 2014Q1

REPORT INFORMATION
  Report Type: Report from Study
  Country: US (occurrence: US)
  Receive Date: 20140224
  Receipt Date: 20140309
  Transmission Date: 20141002
  Serious: Yes (Hospitalization)
  Sender: FDA-Public Use
  Company Number: US-ROCHE-1347699

PATIENT
  Age: 45 Year
  Sex: Female
  Weight: 93.07 kg

DRUGS (11)
  1. TRASTUZUMAB [Suspect]
     Indication: HER-2 POSITIVE BREAST CANCER
     Dosage: LOADING DOSE
     Route: 042
     Dates: start: 20130301, end: 20130301
  2. TRASTUZUMAB [Suspect]
     Dosage: 31/JAN/2014, LAST DOSE ADMINISTERED PRIOR TO SAE. MAINTAINED DOSE
     Route: 042
     Dates: start: 20130322
  3. LASIX [Suspect]
     Indication: OEDEMA
     Route: 048
     Dates: start: 20140201, end: 20140206
  4. LASIX [Suspect]
     Indication: WEIGHT INCREASED
  5. MAGNESIUM OXIDE [Concomitant]
     Route: 065
     Dates: start: 20130412
  6. IBUPROFEN [Concomitant]
     Route: 065
     Dates: start: 20130201
  7. PEPCID [Concomitant]
     Route: 065
     Dates: start: 20130412
  8. POTASSIUM CHLORIDE [Concomitant]
     Route: 065
     Dates: start: 20140201, end: 20140206
  9. TAMOXIFEN [Concomitant]
     Route: 065
     Dates: start: 20130705
  10. PLACEBO [Suspect]
     Indication: HER-2 POSITIVE BREAST CANCER
     Dosage: LOADING DOSE
     Route: 042
     Dates: start: 20130301, end: 20130301
  11. PLACEBO [Suspect]
     Dosage: 31/JAN/2014, LAST DOSE ADMINISTERED PRIOR TO SAE. MAINTENANCE DOSE
     Route: 042
     Dates: start: 20130322

REACTIONS (1)
  - Pancreatitis [Recovered/Resolved]
